FAERS Safety Report 8763938 (Version 1)
Quarter: 2012Q4

REPORT INFORMATION
  Report Type: 
  Country: US (occurrence: US)
  Receive Date: 20120831
  Receipt Date: 20120831
  Transmission Date: 20130627
  Serious: No
  Sender: FDA-Public Use
  Company Number: US-ASTRAZENECA-2011SE62562

PATIENT
  Age: 68 Year
  Sex: Male
  Weight: 89.8 kg

DRUGS (25)
  1. SYMBICORT PMDI [Suspect]
     Route: 055
  2. SEROQUEL XR [Suspect]
     Indication: DEPRESSION
     Route: 048
  3. SEROQUEL XR [Suspect]
     Indication: ANXIETY
     Route: 048
  4. SEROQUEL XR [Suspect]
     Indication: SLEEP DISORDER
     Route: 048
  5. SEROQUEL XR [Suspect]
     Indication: DISTURBANCE IN SOCIAL BEHAVIOUR
     Route: 048
  6. SEROQUEL XR [Suspect]
     Indication: DEPRESSION
     Route: 048
     Dates: start: 201011
  7. SEROQUEL XR [Suspect]
     Indication: ANXIETY
     Route: 048
     Dates: start: 201011
  8. SEROQUEL XR [Suspect]
     Indication: SLEEP DISORDER
     Route: 048
     Dates: start: 201011
  9. SEROQUEL XR [Suspect]
     Indication: DISTURBANCE IN SOCIAL BEHAVIOUR
     Route: 048
     Dates: start: 201011
  10. SEROQUEL XR [Suspect]
     Indication: DEPRESSION
     Route: 048
     Dates: start: 201109
  11. SEROQUEL XR [Suspect]
     Indication: ANXIETY
     Route: 048
     Dates: start: 201109
  12. SEROQUEL XR [Suspect]
     Indication: SLEEP DISORDER
     Route: 048
     Dates: start: 201109
  13. SEROQUEL XR [Suspect]
     Indication: DISTURBANCE IN SOCIAL BEHAVIOUR
     Route: 048
     Dates: start: 201109
  14. HYDROCODONE [Concomitant]
  15. SOMA [Concomitant]
  16. XANAX [Concomitant]
  17. XANAX [Concomitant]
  18. ALBUTEROL [Concomitant]
  19. IPRATROPIUM [Concomitant]
  20. MELOXICAM [Concomitant]
  21. GLIZERIDE [Concomitant]
  22. LISINOPRIL [Concomitant]
     Route: 065
  23. SIMVASTATIN [Concomitant]
  24. CORSET [Concomitant]
     Dosage: AS REQUIRED
     Route: 065
  25. OMEPRAZOLE [Concomitant]
     Route: 065

REACTIONS (8)
  - Hangover [Unknown]
  - Feeling abnormal [Unknown]
  - Activities of daily living impaired [Unknown]
  - Somnolence [Unknown]
  - Somnolence [Unknown]
  - Lethargy [Unknown]
  - Off label use [Unknown]
  - Drug ineffective [Unknown]
